FAERS Safety Report 7371733-2 (Version None)
Quarter: 2011Q1

REPORT INFORMATION
  Report Type: 
  Country: None (occurrence: None)
  Receive Date: 20110314
  Receipt Date: 20110307
  Transmission Date: 20110831
  Serious: Yes (Other)
  Sender: FDA-Public Use
  Company Number: 110046

PATIENT
  Age: 65 Year
  Sex: Female

DRUGS (1)
  1. GOLYTELY [Suspect]
     Indication: COLONOSCOPY

REACTIONS (4)
  - SYNCOPE [None]
  - WRONG TECHNIQUE IN DRUG USAGE PROCESS [None]
  - DEHYDRATION [None]
  - HYPOTENSION [None]
